FAERS Safety Report 20724150 (Version 5)
Quarter: 2023Q2

REPORT INFORMATION
  Report Type: Report from Study
  Country: TW (occurrence: TW)
  Receive Date: 20220419
  Receipt Date: 20230615
  Transmission Date: 20230721
  Serious: Yes (Other)
  Sender: FDA-Public Use
  Company Number: TW-KARYOPHARM-2022KPT000432

PATIENT
  Age: 36 Year
  Sex: Male

DRUGS (7)
  1. SELINEXOR [Suspect]
     Active Substance: SELINEXOR
     Indication: Diffuse large B-cell lymphoma
     Dosage: 40 MG, WEEKLY
     Route: 048
     Dates: start: 20220112, end: 202202
  2. SELINEXOR [Suspect]
     Active Substance: SELINEXOR
     Dosage: 40 MG, WEEKLY
     Route: 048
  3. RITUXIMAB [Concomitant]
     Active Substance: RITUXIMAB
     Indication: Diffuse large B-cell lymphoma
     Dosage: 800 MG
     Dates: start: 202201, end: 202202
  4. GEMCITABINE [Concomitant]
     Active Substance: GEMCITABINE
     Indication: Diffuse large B-cell lymphoma
     Dosage: 1000 MG
     Dates: start: 202201, end: 202202
  5. DEXAMETHASONE [Concomitant]
     Active Substance: DEXAMETHASONE
     Indication: Diffuse large B-cell lymphoma
     Dosage: 8 MG, BID FOR 3 DAYS
     Route: 048
     Dates: start: 202201, end: 202202
  6. DEXAMETHASONE [Concomitant]
     Active Substance: DEXAMETHASONE
     Dosage: 4 MG, TWICE A DAY ONCE WEEKLY
     Dates: start: 20230605
  7. CISPLATIN [Concomitant]
     Active Substance: CISPLATIN
     Indication: Diffuse large B-cell lymphoma
     Dosage: 100 MG
     Dates: start: 202201, end: 202202

REACTIONS (2)
  - Osteonecrosis [Recovering/Resolving]
  - Diarrhoea [Unknown]

NARRATIVE: CASE EVENT DATE: 20220101
